FAERS Safety Report 12851486 (Version 3)
Quarter: 2017Q3

REPORT INFORMATION
  Report Type: Spontaneous
  Country: IT (occurrence: IT)
  Receive Date: 20161017
  Receipt Date: 20170829
  Transmission Date: 20171127
  Serious: Yes (Hospitalization)
  Sender: FDA-Public Use
  Company Number: IT-AUROBINDO-AUR-APL-2016-12666

PATIENT
  Age: 29 Year
  Sex: Male
  Weight: 67 kg

DRUGS (2)
  1. SILDENAFIL. [Suspect]
     Active Substance: SILDENAFIL
     Indication: PRODUCT USED FOR UNKNOWN INDICATION
     Dosage: UNK, MASHED TABLET OF SILDENAFIL
     Route: 065
  2. GAMMA-HYDROXYBUTYRATE [Suspect]
     Active Substance: 4-HYDROXYBUTANOIC ACID
     Indication: PRODUCT USED FOR UNKNOWN INDICATION
     Dosage: UNK, TWO DOSES IN POWDER FROM; DISSOLVED THE TWO DOSES INTO TWO ALCOHOLIC DRINKS 20% ALCOHOL VOLUME
     Route: 048

REACTIONS (8)
  - Headache [Recovered/Resolved]
  - Dyspnoea [Recovered/Resolved]
  - Toxicity to various agents [Recovered/Resolved]
  - Wrong technique in product usage process [Recovered/Resolved]
  - Sinus tachycardia [Recovered/Resolved]
  - Dizziness [Recovered/Resolved]
  - Chest pain [Recovered/Resolved]
  - Intentional product misuse [Recovered/Resolved]
